FAERS Safety Report 7996610-5 (Version None)
Quarter: 2011Q4

REPORT INFORMATION
  Report Type: 
  Country: None (occurrence: None)
  Receive Date: 20111221
  Receipt Date: 20111212
  Transmission Date: 20120403
  Serious: Yes (Hospitalization)
  Sender: FDA-Public Use
  Company Number: US-BIOGENIDEC-203812

PATIENT
  Age: 44 Year
  Sex: Female

DRUGS (5)
  1. AVONEX [Suspect]
     Indication: MULTIPLE SCLEROSIS
     Route: 030
     Dates: start: 20030819
  2. AVONEX [Suspect]
     Route: 030
     Dates: start: 19970714, end: 20030101
  3. DITROPAN [Concomitant]
     Indication: AUTOMATIC BLADDER
  4. PAXIL [Concomitant]
     Indication: DEPRESSION
  5. ACETAMINOPHEN [Concomitant]
     Indication: PREMEDICATION

REACTIONS (4)
  - CHOLELITHIASIS [None]
  - HYPERTENSION [None]
  - CHOLECYSTITIS [None]
  - CHROMATURIA [None]
